FAERS Safety Report 10080207 (Version 2)
Quarter: 2014Q2

REPORT INFORMATION
  Report Type: Spontaneous
  Country: US (occurrence: US)
  Receive Date: 20140415
  Receipt Date: 20140625
  Transmission Date: 20141212
  Serious: Yes (Hospitalization)
  Sender: FDA-Public Use
  Company Number: US-B.I. PHARMACEUTICALS,INC./RIDGEFIELD-2014-BI-16725BP

PATIENT
  Age: 61 Year
  Sex: Female
  Weight: 48.9 kg

DRUGS (15)
  1. SPIRIVA [Suspect]
     Indication: EMPHYSEMA
     Dosage: 18 MCG
     Route: 055
     Dates: start: 201312
  2. MICARDIS HCT TABLETS [Suspect]
     Indication: HYPERTENSION
     Dosage: DOSE PER APPLICATION: 80 MG/25 MG; DAILY DOSE: 160 MG/50 MG
     Route: 048
     Dates: start: 2004, end: 20140403
  3. SERTRALINE [Concomitant]
     Indication: DEPRESSION
     Dosage: 100 MG
     Route: 048
  4. GUAIFENESIN [Concomitant]
     Indication: EMPHYSEMA
     Dosage: 2400 MG
     Route: 048
  5. LORAZEPAM [Concomitant]
     Indication: DEPRESSION
     Dosage: 1.5 MG
     Route: 048
  6. FUROSEMIDE [Concomitant]
     Indication: FLUID RETENTION
     Dosage: 20 MG
     Route: 048
  7. OXYCODONE [Concomitant]
     Indication: BACK PAIN
     Route: 048
  8. ALBUTEROL [Concomitant]
     Indication: EMPHYSEMA
     Dosage: FORMULATION: INHALATION SOLUTION
     Route: 055
  9. CLONIDINE [Concomitant]
     Indication: HYPERTENSION
     Dosage: 0.1 MG
     Route: 048
  10. BENTYL [Concomitant]
     Indication: ABDOMINAL PAIN
     Dosage: 10 MG
     Route: 048
  11. GABAPENTIN [Concomitant]
     Indication: BACK PAIN
     Dosage: 1200 MG
     Route: 048
  12. LEVOTHYROXINE [Concomitant]
     Indication: HYPOTHYROIDISM
     Dosage: 75 MCG
     Route: 048
  13. POLYETHYLENE  GLYCOL [Concomitant]
     Indication: CONSTIPATION
     Dosage: 17 G
     Route: 048
  14. POTASSIUM CHLORIDE [Concomitant]
     Indication: MINERAL SUPPLEMENTATION
     Dosage: 20 MEQ
     Route: 048
  15. SENNA DUCOSATE [Concomitant]
     Indication: CONSTIPATION
     Dosage: 100 MG
     Route: 048

REACTIONS (7)
  - Pneumonia [Recovered/Resolved]
  - Influenza [Recovered/Resolved]
  - Hypotension [Unknown]
  - Dyspnoea [Unknown]
  - Blood potassium decreased [Unknown]
  - Prescribed overdose [Recovered/Resolved]
  - Overdose [Recovered/Resolved]
